FAERS Safety Report 4289156-1 (Version None)
Quarter: 2004Q1

REPORT INFORMATION
  Report Type: 
  Country: None (occurrence: None)
  Receive Date: 20040206
  Receipt Date: 20040126
  Transmission Date: 20041129
  Serious: Yes (Hospitalization)
  Sender: FDA-Public Use
  Company Number: 2003UW17222

PATIENT
  Age: 72 Year
  Sex: Male

DRUGS (10)
  1. ELAVIL [Suspect]
     Indication: POST HERPETIC NEURALGIA
     Dosage: 10 MG DAILY PO
     Route: 048
     Dates: start: 20031121, end: 20031126
  2. ELAVIL [Suspect]
     Indication: POST HERPETIC NEURALGIA
     Dosage: 25 MG DAILY PO
     Route: 048
     Dates: start: 20031127, end: 20031130
  3. ELAVIL [Suspect]
     Indication: POST HERPETIC NEURALGIA
     Dosage: 35 MG DAILY PO
     Route: 048
     Dates: start: 20031201, end: 20031209
  4. ALPRAZOLAM [Concomitant]
  5. ETHYL LOFALZEPATE [Concomitant]
  6. TRICHLORMETHIAZIDE [Concomitant]
  7. BACLOFEN [Concomitant]
  8. IBUDILAST [Concomitant]
  9. NICARDIPINE HYDROCHLORIDE [Concomitant]
  10. SOFALCONE [Concomitant]

REACTIONS (2)
  - BLOOD POTASSIUM DECREASED [None]
  - INAPPROPRIATE ANTIDIURETIC HORMONE SECRETION [None]
